FAERS Safety Report 5160529-8 (Version None)
Quarter: 2006Q4

REPORT INFORMATION
  Report Type: 
  Country: None (occurrence: None)
  Receive Date: 20061129
  Receipt Date: 20061120
  Transmission Date: 20070319
  Serious: Yes (Death)
  Sender: FDA-Public Use
  Company Number: ES-ABBOTT-06P-144-0350984-00

PATIENT
  Age: 39 Year
  Sex: Male

DRUGS (4)
  1. NORVIR [Suspect]
     Indication: HIV INFECTION
     Route: 048
     Dates: start: 20060914, end: 20060921
  2. TRUVADA [Interacting]
     Indication: HIV INFECTION
     Route: 048
     Dates: start: 20060914, end: 20060921
  3. TELZIR(TELZIR) [Interacting]
     Indication: HIV INFECTION
     Route: 048
     Dates: start: 20060914, end: 20060921
  4. BACTRIM [Concomitant]
     Indication: HIV INFECTION
     Route: 048
     Dates: start: 20060914, end: 20060921

REACTIONS (4)
  - DRUG INTERACTION [None]
  - HEPATORENAL SYNDROME [None]
  - PERITONEAL INFECTION [None]
  - SEPSIS [None]
